FAERS Safety Report 13057400 (Version 3)
Quarter: 2017Q1

REPORT INFORMATION
  Report Type: Report from Study
  Country: KR (occurrence: KR)
  Receive Date: 20161223
  Receipt Date: 20170224
  Transmission Date: 20170428
  Serious: Yes (Hospitalization)
  Sender: FDA-Public Use
  Company Number: KR-ASTRAZENECA-2016SF32788

PATIENT
  Age: 23419 Day
  Sex: Male

DRUGS (10)
  1. AZD6094 [Suspect]
     Active Substance: SAVOLITINIB
     Indication: NON-SMALL CELL LUNG CANCER
     Route: 048
     Dates: start: 20161228, end: 20161229
  2. ATORVASTATIN [Concomitant]
     Active Substance: ATORVASTATIN
     Indication: HYPERTENSION
     Route: 048
  3. TAGRISSO [Suspect]
     Active Substance: OSIMERTINIB
     Indication: NON-SMALL CELL LUNG CANCER
     Route: 048
     Dates: start: 20161228
  4. AZD6094 [Suspect]
     Active Substance: SAVOLITINIB
     Indication: NON-SMALL CELL LUNG CANCER
     Route: 048
     Dates: start: 20161116, end: 20161214
  5. CODAEWON FORTE SYRUP [Concomitant]
     Indication: UPPER RESPIRATORY TRACT INFECTION
     Route: 048
     Dates: start: 20161130, end: 20161209
  6. TAGRISSO [Suspect]
     Active Substance: OSIMERTINIB
     Indication: NON-SMALL CELL LUNG CANCER
     Route: 048
     Dates: start: 20161116, end: 20161214
  7. ASPIRIN ENTERIC COATED [Concomitant]
     Active Substance: ASPIRIN
     Indication: HYPERTENSION
     Route: 048
  8. ACETAMINOPHEN. [Concomitant]
     Active Substance: ACETAMINOPHEN
     Indication: CHILLS
     Dosage: 650.0MG AS REQUIRED
     Route: 048
     Dates: start: 20161210, end: 20161213
  9. FEXOFENADINE [Concomitant]
     Active Substance: FEXOFENADINE\FEXOFENADINE HYDROCHLORIDE
     Indication: UPPER RESPIRATORY TRACT INFECTION
     Route: 048
     Dates: start: 20161109, end: 20161209
  10. AMLODIPINE [Concomitant]
     Active Substance: AMLODIPINE BESYLATE
     Indication: HYPERTENSION
     Route: 048

REACTIONS (2)
  - Aspartate aminotransferase increased [Recovered/Resolved]
  - Alanine aminotransferase increased [Recovered/Resolved]

NARRATIVE: CASE EVENT DATE: 20161214
